FAERS Safety Report 5639288-8 (Version None)
Quarter: 2008Q1

REPORT INFORMATION
  Report Type: 
  Country: None (occurrence: None)
  Receive Date: 20080226
  Receipt Date: 20080218
  Transmission Date: 20080703
  Serious: Yes (Hospitalization, Other)
  Sender: FDA-Public Use
  Company Number: US-ELI_LILLY_AND_COMPANY-US200801002841

PATIENT
  Sex: Male

DRUGS (3)
  1. BYETTA [Suspect]
     Dosage: 10 UG, 2/D
     Route: 058
     Dates: start: 20071001
  2. GLUCOPHAGE [Concomitant]
     Dosage: UNK, UNKNOWN
  3. GLYBURIDE [Concomitant]
     Dosage: UNK, UNKNOWN

REACTIONS (6)
  - APHTHOUS STOMATITIS [None]
  - BLOOD GLUCOSE INCREASED [None]
  - COMPLICATION OF DEVICE INSERTION [None]
  - DRY MOUTH [None]
  - HOSPITALISATION [None]
  - WOUND INFECTION STAPHYLOCOCCAL [None]
